FAERS Safety Report 16573757 (Version 1)
Quarter: 2019Q3

REPORT INFORMATION
  Report Type: Spontaneous
  Country: GB (occurrence: GB)
  Receive Date: 20190715
  Receipt Date: 20190715
  Transmission Date: 20191004
  Serious: Yes (Hospitalization)
  Sender: FDA-Public Use
  Company Number: GB-JNJFOC-20190708294

PATIENT
  Age: 57 Year
  Sex: Female

DRUGS (14)
  1. FEXOFENADINE [Concomitant]
     Active Substance: FEXOFENADINE HYDROCHLORIDE
     Route: 048
  2. HYDROXYZINE [Concomitant]
     Active Substance: HYDROXYZINE HYDROCHLORIDE
     Dosage: NIGHT
     Route: 048
  3. PREDNISOLONE. [Concomitant]
     Active Substance: PREDNISOLONE
     Route: 048
     Dates: end: 20190528
  4. PARAFFIN WHITE SOFT [Concomitant]
     Dosage: AS REQUIRED
     Route: 061
  5. AMITRIPTYLINE [Concomitant]
     Active Substance: AMITRIPTYLINE
     Dosage: NIGHT
     Route: 048
  6. STELARA [Suspect]
     Active Substance: USTEKINUMAB
     Indication: PRODUCT USED FOR UNKNOWN INDICATION
     Dosage: 45MG/0.5ML. REVIEWED AND PLAN TO CONTINUE WITH TRIAL
     Route: 058
     Dates: start: 20190528
  7. DERMOL                             /01330701/ [Concomitant]
     Dosage: AS REQUIRED
     Route: 061
  8. RAMIPRIL. [Concomitant]
     Active Substance: RAMIPRIL
     Route: 048
  9. OXERUTINS [Concomitant]
     Route: 048
  10. SERTRALINE [Concomitant]
     Active Substance: SERTRALINE HYDROCHLORIDE
     Route: 048
  11. HYLO-FORTE [Concomitant]
     Active Substance: HYALURONATE SODIUM
     Dosage: AS REQUIRED
     Route: 031
  12. GLYCEROL [Concomitant]
     Active Substance: GLYCERIN
     Dosage: AS REQUIRED
     Route: 054
  13. PARAFFIN, LIQUID [Concomitant]
     Dosage: ; AS REQUIRED
     Route: 061
  14. ESTRADIOL. [Concomitant]
     Active Substance: ESTRADIOL
     Route: 048

REACTIONS (2)
  - Malaise [Unknown]
  - Psoriasis [Recovering/Resolving]

NARRATIVE: CASE EVENT DATE: 20190604
